FAERS Safety Report 5132321-1 (Version None)
Quarter: 2006Q4

REPORT INFORMATION
  Report Type: 
  Country: None (occurrence: None)
  Receive Date: 20061023
  Receipt Date: 20061009
  Transmission Date: 20070319
  Serious: Yes (Other)
  Sender: FDA-Public Use
  Company Number: PHHO2006NZ16980

PATIENT
  Sex: Male

DRUGS (1)
  1. CLOZARIL [Suspect]
     Indication: SCHIZOPHRENIA

REACTIONS (11)
  - ALANINE AMINOTRANSFERASE INCREASED [None]
  - BLOOD ALKALINE PHOSPHATASE INCREASED [None]
  - BLOOD CREATINE PHOSPHOKINASE INCREASED [None]
  - BLOOD CREATININE INCREASED [None]
  - BLOOD MAGNESIUM INCREASED [None]
  - BLOOD PHOSPHORUS INCREASED [None]
  - BLOOD UREA DECREASED [None]
  - DRUG SCREEN POSITIVE [None]
  - MONOCYTE COUNT INCREASED [None]
  - THYROXINE INCREASED [None]
  - WHITE BLOOD CELL COUNT INCREASED [None]
